FAERS Safety Report 24611808 (Version 1)
Quarter: 2024Q4

REPORT INFORMATION
  Report Type: Spontaneous
  Country: US (occurrence: US)
  Receive Date: 20241113
  Receipt Date: 20241113
  Transmission Date: 20250115
  Serious: Yes (Death, Other)
  Sender: DR REDDYS
  Company Number: US-DRL-USA-LIT/USA/24/0016730

PATIENT
  Age: 30 Year
  Sex: Male

DRUGS (10)
  1. LEVETIRACETAM [Suspect]
     Active Substance: LEVETIRACETAM
     Indication: Generalised tonic-clonic seizure
  2. DOXORUBICIN [Suspect]
     Active Substance: DOXORUBICIN
     Indication: Kaposi^s sarcoma
  3. PHENYLEPHRINE HYDROCHLORIDE [Suspect]
     Active Substance: PHENYLEPHRINE HYDROCHLORIDE
     Indication: Cardiac arrest
  4. PACLITAXEL [Suspect]
     Active Substance: PACLITAXEL
     Indication: Kaposi^s sarcoma
  5. VORICONAZOLE [Suspect]
     Active Substance: VORICONAZOLE
     Indication: Kaposi^s sarcoma
  6. NOREPINEPHRINE [Suspect]
     Active Substance: NOREPINEPHRINE\NOREPINEPHRINE BITARTRATE
     Indication: Kaposi^s sarcoma
  7. EPINEPHRINE [Suspect]
     Active Substance: EPINEPHRINE
     Indication: Kaposi^s sarcoma
  8. TENOFOVIR [Suspect]
     Active Substance: TENOFOVIR
     Indication: HIV infection
  9. EMTRICITABINE [Suspect]
     Active Substance: EMTRICITABINE
     Indication: HIV infection
  10. DOLUTEGRAVIR [Suspect]
     Active Substance: DOLUTEGRAVIR

REACTIONS (4)
  - Cardiac arrest [Fatal]
  - Multiple organ dysfunction syndrome [Fatal]
  - Malignant neoplasm progression [Fatal]
  - Drug ineffective [Fatal]
